FAERS Safety Report 9650674 (Version 1)
Quarter: 2013Q4

REPORT INFORMATION
  Report Type: Spontaneous
  Country: CA (occurrence: CA)
  Receive Date: 20131029
  Receipt Date: 20131029
  Transmission Date: 20140711
  Serious: Yes (Other)
  Sender: FDA-Public Use
  Company Number: CA-AMGEN-CANSP2013074524

PATIENT
  Age: 72 Year
  Sex: Female

DRUGS (1)
  1. PROLIA [Suspect]
     Indication: OSTEOPOROSIS POSTMENOPAUSAL
     Dosage: 60 MG, UNK
     Route: 065
     Dates: start: 20120912

REACTIONS (9)
  - Nephrolithiasis [Unknown]
  - Hypertension [Unknown]
  - Muscle spasms [Unknown]
  - Dysuria [Unknown]
  - Pain [Unknown]
  - Bone pain [Unknown]
  - Amnesia [Unknown]
  - Quality of life decreased [Unknown]
  - Disturbance in attention [Unknown]
